FAERS Safety Report 8620297-1 (Version None)
Quarter: 2012Q3

REPORT INFORMATION
  Report Type: 
  Country: None (occurrence: None)
  Receive Date: 20120824
  Receipt Date: 20120817
  Transmission Date: 20120928
  Serious: Yes (Hospitalization)
  Sender: FDA-Public Use
  Company Number: NZ-B.I. PHARMACEUTICALS,INC./RIDGEFIELD-2012-AU-01469AU

PATIENT
  Sex: Female

DRUGS (10)
  1. ATACAND [Concomitant]
     Dosage: 16 MG
     Route: 048
  2. SPAN K [Concomitant]
     Dosage: 1800 MG
     Route: 048
  3. DIGOXIN [Concomitant]
     Dosage: 187.5 MG
     Route: 048
  4. FUROSEMIDE [Concomitant]
     Dosage: 40 MG
     Route: 048
  5. PRADAXA [Suspect]
     Dosage: 220 MG
     Dates: start: 20110701, end: 20120513
  6. AMIODARONE HCL [Concomitant]
     Dosage: 100 MG
     Route: 048
  7. FUROSEMIDE [Concomitant]
     Dosage: 120 MG
     Route: 048
  8. VALPROATE SODIUM [Concomitant]
     Dosage: 1 G
     Route: 048
  9. FLUOXETINE HCL [Concomitant]
     Dosage: 30 MG
     Route: 048
  10. CARDIZEM CD [Concomitant]
     Dosage: 120 MG
     Route: 048

REACTIONS (3)
  - ARTHRALGIA [None]
  - JOINT SWELLING [None]
  - HAEMARTHROSIS [None]
